FAERS Safety Report 17276481 (Version 4)
Quarter: 2020Q1

REPORT INFORMATION
  Report Type: Spontaneous
  Country: US (occurrence: FI)
  Receive Date: 20200116
  Receipt Date: 20200316
  Transmission Date: 20200409
  Serious: Yes (Hospitalization, Other)
  Sender: FDA-Public Use
  Company Number: US-JNJFOC-20200115279

PATIENT
  Age: 75 Year
  Sex: Female

DRUGS (2)
  1. RIVAROXABAN [Suspect]
     Active Substance: RIVAROXABAN
     Indication: ATRIAL FIBRILLATION
     Dosage: 20 MG, UNK
     Route: 048
     Dates: start: 201912, end: 202001
  2. RIVAROXABAN [Suspect]
     Active Substance: RIVAROXABAN
     Dosage: 20 MG, UNK
     Route: 048
     Dates: start: 202001

REACTIONS (8)
  - Cardiac failure [Unknown]
  - Blood folate decreased [Unknown]
  - Myocardial infarction [Recovered/Resolved]
  - Anaemia [Unknown]
  - Haemoglobin decreased [Recovering/Resolving]
  - Coronary artery thrombosis [Unknown]
  - Faeces discoloured [Unknown]
  - Gastrointestinal haemorrhage [Recovered/Resolved]

NARRATIVE: CASE EVENT DATE: 201912
